FAERS Safety Report 7561575-7 (Version None)
Quarter: 2011Q2

REPORT INFORMATION
  Report Type: 
  Country: None (occurrence: None)
  Receive Date: 20110621
  Receipt Date: 20100902
  Transmission Date: 20111010
  Serious: No
  Sender: FDA-Public Use
  Company Number: US-ASTRAZENECA-2010SE41362

PATIENT
  Age: 85 Year
  Sex: Female

DRUGS (4)
  1. OTC ANTIHISTAMINES [Concomitant]
  2. PULMICORT FLEXHALER [Suspect]
     Indication: ASTHMA
     Dosage: 180 MCG, 2 PUFFS TWICE A DAY
     Route: 055
     Dates: start: 20100501
  3. SINGULAIR [Concomitant]
  4. PULMICORT FLEXHALER [Suspect]
     Dosage: 180 MCG, 1 PUFFS ONCE A DAY
     Route: 055
     Dates: start: 20100901

REACTIONS (5)
  - DYSPNOEA [None]
  - DYSPHONIA [None]
  - CATARACT [None]
  - EXCESSIVE EYE BLINKING [None]
  - INCORRECT DOSE ADMINISTERED [None]
